FAERS Safety Report 9210808 (Version 2)
Quarter: 2014Q4

REPORT INFORMATION
  Report Type: Spontaneous
  Country: TR (occurrence: TR)
  Receive Date: 20130404
  Receipt Date: 20141230
  Transmission Date: 20150529
  Serious: Yes (Hospitalization)
  Sender: FDA-Public Use
  Company Number: PHHY2013TR031383

PATIENT
  Age: 55 Year
  Sex: Male
  Weight: 77 kg

DRUGS (1)
  1. BUPROPION [Suspect]
     Active Substance: BUPROPION
     Indication: SMOKING CESSATION THERAPY
     Dosage: 150 MG, QD
     Route: 048

REACTIONS (24)
  - Haemolytic anaemia [Unknown]
  - Acute kidney injury [Unknown]
  - Decreased appetite [Recovered/Resolved]
  - Ocular icterus [Recovered/Resolved]
  - Gaze palsy [Recovered/Resolved]
  - Pneumonia [Unknown]
  - Thrombotic thrombocytopenic purpura [Recovered/Resolved]
  - Thrombocytopenia [Recovered/Resolved]
  - Generalised tonic-clonic seizure [Recovered/Resolved]
  - Apathy [Recovered/Resolved]
  - Disorientation [Recovered/Resolved]
  - Diarrhoea [Unknown]
  - Malaise [Unknown]
  - Abnormal behaviour [Recovered/Resolved]
  - Mucosal dryness [Unknown]
  - Anuria [Unknown]
  - Depression [Recovered/Resolved]
  - Nervous system disorder [Recovered/Resolved]
  - Anxiety [Recovered/Resolved]
  - Depressed mood [Recovered/Resolved]
  - Speech disorder [Recovered/Resolved]
  - Confusional state [Recovered/Resolved]
  - Hyperbilirubinaemia [Recovered/Resolved]
  - Loss of consciousness [Recovered/Resolved]
